FAERS Safety Report 8816954 (Version 1)
Quarter: 2012Q4

REPORT INFORMATION
  Report Type: Spontaneous
  Country: US (occurrence: None)
  Receive Date: 20121003
  Receipt Date: 20121003
  Transmission Date: 20130627
  Serious: Yes (Other)
  Sender: FDA-Public Use
  Company Number: None

PATIENT
  Age: 56 Year
  Sex: Male
  Weight: 77.11 kg

DRUGS (2)
  1. AVELOX [Suspect]
     Indication: COLITIS
     Dosage: 1 tablet daily
     Dates: start: 20120813, end: 20120816
  2. AVELOX [Suspect]
     Indication: ABSCESS INTESTINAL
     Dosage: 1 tablet daily
     Dates: start: 20120813, end: 20120816

REACTIONS (2)
  - Hypoaesthesia [None]
  - Hypoaesthesia [None]
